FAERS Safety Report 5861609-1 (Version None)
Quarter: 2008Q3

REPORT INFORMATION
  Report Type: 
  Country: None (occurrence: None)
  Receive Date: 20080827
  Receipt Date: 20080602
  Transmission Date: 20090109
  Serious: No
  Sender: FDA-Public Use
  Company Number: US-ABBOTT-08P-163-0454479-00

PATIENT
  Sex: Male
  Weight: 90.8 kg

DRUGS (19)
  1. COATED PDS [Suspect]
     Indication: HIGH DENSITY LIPOPROTEIN DECREASED
     Route: 048
     Dates: start: 20080419, end: 20080424
  2. COATED PDS [Suspect]
     Route: 048
     Dates: start: 20080516
  3. METFORMIN HCL [Concomitant]
     Indication: DIABETES MELLITUS
     Route: 048
     Dates: start: 19970101
  4. SALBUTAMOL [Concomitant]
     Indication: RESPIRATORY THERAPY
     Route: 055
  5. METOPROLOL SUCCINATE [Concomitant]
     Indication: BLOOD PRESSURE
     Route: 048
     Dates: start: 20080416
  6. ESOMEPRAZOLE MAGNESIUM [Concomitant]
     Indication: GASTROOESOPHAGEAL REFLUX DISEASE
     Route: 048
     Dates: start: 20030101
  7. ACETYLSALICYLIC ACID SRT [Concomitant]
     Indication: CARDIOVASCULAR DISORDER
     Route: 048
     Dates: start: 19870101
  8. SIMVASTATIN [Concomitant]
     Indication: BLOOD CHOLESTEROL
     Route: 048
     Dates: start: 20030101
  9. CLOPIDOGREL [Concomitant]
     Indication: ANTICOAGULANT THERAPY
     Route: 048
     Dates: start: 20030101
  10. LOSARTAN POTASSIUM [Concomitant]
     Indication: BLOOD PRESSURE
     Route: 048
     Dates: start: 20030101
  11. ISOSORBIDE MONONITRATE [Concomitant]
     Indication: ARTERIAL SPASM
     Route: 048
     Dates: start: 20030101
  12. CARISOPRODOL [Concomitant]
     Indication: NERVE COMPRESSION
     Dosage: 350 MG 1 TAB EVER 6 HOURS AS NEEDED
     Route: 048
     Dates: start: 20080302
  13. FUROSEMIDE [Concomitant]
     Indication: FLUID OVERLOAD
     Dosage: 20 MG DAILY AS NEEDED
     Route: 048
  14. FUROSEMIDE [Concomitant]
  15. POTASSIUM CHLORIDE [Concomitant]
     Indication: BLOOD POTASSIUM
     Dosage: 10 MEQ AS NEEDED
     Route: 048
  16. MECLIZINE [Concomitant]
     Indication: VERTIGO
     Dosage: 25 MG, THREE TO FOUR TIMES DAILY AS NEEDED
     Route: 048
  17. MINOCYCLINE HCL [Concomitant]
     Indication: ROSACEA
     Dosage: 75 MG TWICE DAILY AS NEEDED
     Route: 048
  18. HYDROXYZINE HYDROCHLORIDE [Concomitant]
     Indication: ANXIETY
     Dosage: 25 MG AS NEEDED
     Route: 048
  19. NITROGLYCERIN [Concomitant]
     Indication: CHEST PAIN
     Dosage: 0.4 MG AS NEEDED
     Route: 060

REACTIONS (2)
  - BLOOD GLUCOSE INCREASED [None]
  - FLUSHING [None]
